FAERS Safety Report 8294291-7 (Version None)
Quarter: 2012Q2

REPORT INFORMATION
  Report Type: 
  Country: None (occurrence: None)
  Receive Date: 20120418
  Receipt Date: 20120412
  Transmission Date: 20120825
  Serious: Yes (Other)
  Sender: FDA-Public Use
  Company Number: JP-SANOFI-AVENTIS-2011SA085306

PATIENT
  Age: 72 Year
  Sex: Male

DRUGS (7)
  1. CANDESARTAN CILEXETIL [Concomitant]
     Route: 048
     Dates: start: 20090410, end: 20100709
  2. ITAVASTATIN [Concomitant]
     Dates: start: 20090410, end: 20100709
  3. APIDRA [Suspect]
     Dosage: DOSE:7 UNIT(S)
     Route: 065
     Dates: start: 20100617, end: 20100709
  4. AMARYL [Concomitant]
     Dates: start: 20081112, end: 20100609
  5. ACTOS [Concomitant]
     Dates: start: 20081112, end: 20100609
  6. APIDRA [Suspect]
     Indication: DIABETES MELLITUS
     Dosage: DOSE:5 UNIT(S)
     Route: 065
     Dates: start: 20100609, end: 20100616
  7. GLUCOBAY [Concomitant]
     Dates: start: 20081112, end: 20100609

REACTIONS (1)
  - PROSTATE CANCER [None]
